FAERS Safety Report 8621322 (Version 2)
Quarter: 2014Q1

REPORT INFORMATION
  Report Type: Spontaneous
  Country: US (occurrence: None)
  Receive Date: 20120323
  Receipt Date: 20130305
  Transmission Date: 20141002
  Serious: Yes (Hospitalization, Other)
  Sender: FDA-Public Use
  Company Number: 163-21880-11070837

PATIENT
  Age: 65 Year
  Sex: Male

DRUGS (6)
  1. REVLIMID [Suspect]
     Indication: PLASMA CELL MYELOMA
     Route: 048
     Dates: start: 20100729
  2. REVLIMID [Suspect]
     Indication: DISEASE PROGRESSION
     Route: 048
     Dates: start: 20100729
  3. QUINAPRIL [Concomitant]
  4. TOPROL XL [Concomitant]
  5. HYDROCHLOROTHIAZIDE [Concomitant]
  6. ASPIRIN [Concomitant]

REACTIONS (3)
  - Venous thrombosis limb [None]
  - Plasma cell myeloma [None]
  - Disease progression [None]
